FAERS Safety Report 11237676 (Version 3)
Quarter: 2015Q3

REPORT INFORMATION
  Report Type: Spontaneous
  Country: JP (occurrence: JP)
  Receive Date: 20150703
  Receipt Date: 20150909
  Transmission Date: 20151125
  Serious: Yes (Hospitalization)
  Sender: FDA-Public Use
  Company Number: JP-AMGEN-JPNSP2015057868

PATIENT
  Age: 5 Decade
  Sex: Male
  Weight: 53 kg

DRUGS (13)
  1. ADRIACIN [Concomitant]
     Active Substance: DOXORUBICIN HYDROCHLORIDE
     Indication: LYMPHOMA
     Dosage: 65 MG, 1X/3WEEKS
     Route: 041
     Dates: start: 20150315
  2. APONOL [Concomitant]
     Active Substance: IFENPRODIL TARTRATE
     Indication: CEREBRAL INFARCTION
     Dosage: 20 MG, TID
     Route: 048
  3. DIOVAN [Concomitant]
     Active Substance: VALSARTAN
     Indication: HYPERTENSION
     Dosage: 80 MG, QD
     Route: 048
  4. NEXIUM [Concomitant]
     Active Substance: ESOMEPRAZOLE MAGNESIUM
     Indication: GASTROOESOPHAGEAL REFLUX DISEASE
     Dosage: 10 MG, QD
     Route: 048
     Dates: start: 20130404
  5. TRINOSIN [Concomitant]
     Active Substance: ADENOSINE TRIPHOSPHATE DISODIUM
     Indication: CEREBRAL INFARCTION
     Dosage: 300 MG, TID
     Route: 048
     Dates: start: 20110217
  6. ARICEPT [Concomitant]
     Active Substance: DONEPEZIL HYDROCHLORIDE
     Indication: DEMENTIA ALZHEIMER^S TYPE
     Dosage: 3 MG, QD
     Route: 048
     Dates: start: 20150424
  7. G-LASTA [Suspect]
     Active Substance: PEGFILGRASTIM
     Indication: NEUTROPENIA
     Dosage: 3.6 MG, QD
     Route: 058
     Dates: start: 20150501, end: 20150501
  8. ONCOVIN [Concomitant]
     Active Substance: VINCRISTINE SULFATE
     Indication: LYMPHOMA
     Dosage: 1.8 MG, 1X/3WEEKS
     Route: 041
     Dates: start: 201503
  9. ENDOXAN                            /00021102/ [Concomitant]
     Active Substance: CYCLOPHOSPHAMIDE
     Indication: LYMPHOMA
     Dosage: 950 MG, 1X/3WEEKS
     Route: 041
     Dates: start: 20150309
  10. GRANISETRON [Suspect]
     Active Substance: GRANISETRON
     Indication: LYMPHOMA
     Dosage: 3 MG, 1X/3WEEKS
     Route: 041
     Dates: start: 201503
  11. RITUXAN [Concomitant]
     Active Substance: RITUXIMAB
     Indication: LYMPHOMA
     Dosage: 480 MG, 1X/3WEEKS
     Route: 041
     Dates: start: 20150331
  12. PREDNISOLONE. [Concomitant]
     Active Substance: PREDNISOLONE
     Dosage: UNK
     Route: 048
  13. ADALAT [Concomitant]
     Active Substance: NIFEDIPINE
     Indication: HYPERTENSION
     Dosage: 40 MG, QD
     Route: 048

REACTIONS (1)
  - Pain [Recovered/Resolved]

NARRATIVE: CASE EVENT DATE: 20150502
